FAERS Safety Report 20913193 (Version 1)
Quarter: 2022Q2

REPORT INFORMATION
  Report Type: Spontaneous
  Country: US (occurrence: US)
  Receive Date: 20220603
  Receipt Date: 20220603
  Transmission Date: 20220721
  Serious: No
  Sender: FDA-Public Use
  Company Number: US-BRAINTREE LABORATORIES, INC.-2022BTE00293

PATIENT
  Sex: Male

DRUGS (1)
  1. SUTAB [Suspect]
     Active Substance: MAGNESIUM SULFATE\POTASSIUM CHLORIDE\SODIUM SULFATE
     Dosage: UNK
     Dates: start: 20220404, end: 202204

REACTIONS (3)
  - Malaise [Recovered/Resolved]
  - Drug ineffective [Recovered/Resolved]
  - Gastric disorder [Not Recovered/Not Resolved]

NARRATIVE: CASE EVENT DATE: 20220404
